FAERS Safety Report 4764738-9 (Version None)
Quarter: 2005Q3

REPORT INFORMATION
  Report Type: 
  Country: None (occurrence: None)
  Receive Date: 20050909
  Receipt Date: 20050729
  Transmission Date: 20060218
  Serious: Yes (Hospitalization, Other)
  Sender: FDA-Public Use
  Company Number: US-MERCK-0508USA00454

PATIENT
  Age: 65 Year
  Sex: Male
  Weight: 82 kg

DRUGS (12)
  1. VIOXX [Suspect]
     Indication: PAIN
     Route: 048
     Dates: start: 19990101, end: 20040901
  2. VIOXX [Suspect]
     Indication: INFLAMMATION
     Route: 048
     Dates: start: 19990101, end: 20040901
  3. ULTRAM [Concomitant]
     Route: 065
  4. BUSPAR [Concomitant]
     Route: 065
  5. QUININE [Concomitant]
     Route: 065
  6. XANAX [Concomitant]
     Route: 065
  7. LORCET-HD [Concomitant]
     Route: 065
  8. AMBIEN [Concomitant]
     Route: 065
  9. SYNTHROID [Concomitant]
     Route: 065
  10. PRILOSEC [Concomitant]
     Route: 065
  11. ALBUTEROL [Concomitant]
     Route: 065
  12. [THERAPY UNSPECIFIED] [Concomitant]
     Route: 065

REACTIONS (6)
  - CHEST PAIN [None]
  - DEHYDRATION [None]
  - EYE DISORDER [None]
  - HEART RATE INCREASED [None]
  - MYOCARDIAL INFARCTION [None]
  - PAIN [None]
